APPROVED DRUG PRODUCT: NEBIVOLOL HYDROCHLORIDE
Active Ingredient: NEBIVOLOL HYDROCHLORIDE
Strength: EQ 20MG BASE
Dosage Form/Route: TABLET;ORAL
Application: A203741 | Product #004
Applicant: ALKEM LABORATORIES LTD
Approved: Jun 24, 2015 | RLD: No | RS: No | Type: DISCN